FAERS Safety Report 6285659-9 (Version None)
Quarter: 2009Q3

REPORT INFORMATION
  Report Type: 
  Country: None (occurrence: None)
  Receive Date: 20090724
  Receipt Date: 20090708
  Transmission Date: 20100115
  Serious: Yes (Hospitalization, Other)
  Sender: FDA-Public Use
  Company Number: A-NJ2009-25976

PATIENT
  Age: 75 Year
  Sex: Female

DRUGS (6)
  1. VENTAVIS [Suspect]
     Indication: PULMONARY ARTERIAL HYPERTENSION
     Dosage: 5 UG, 6XDAY, RESPIRATORY; 2.5 UG, 6XDAY, RESPIRATORY; 5 UG, 6XDAY
     Route: 055
     Dates: start: 20090512, end: 20090601
  2. VENTAVIS [Suspect]
     Indication: PULMONARY ARTERIAL HYPERTENSION
     Dosage: 5 UG, 6XDAY, RESPIRATORY; 2.5 UG, 6XDAY, RESPIRATORY; 5 UG, 6XDAY
     Route: 055
     Dates: start: 20090601, end: 20090702
  3. VENTAVIS [Suspect]
     Indication: PULMONARY ARTERIAL HYPERTENSION
     Dosage: 5 UG, 6XDAY, RESPIRATORY; 2.5 UG, 6XDAY, RESPIRATORY; 5 UG, 6XDAY
     Route: 055
     Dates: start: 20090706
  4. WARFARIN SODIUM [Concomitant]
  5. FUROSEMIDE [Concomitant]
  6. AUGMENTIN (CLAVULANIC ACID, AMOXICILLIN) [Concomitant]

REACTIONS (4)
  - ANAEMIA [None]
  - CONTACT STOMATITIS [None]
  - HAEMORRHAGE [None]
  - INTERNATIONAL NORMALISED RATIO INCREASED [None]
